FAERS Safety Report 10224158 (Version 1)
Quarter: 2014Q2

REPORT INFORMATION
  Report Type: Spontaneous
  Country: IN (occurrence: None)
  Receive Date: 20140605
  Receipt Date: 20140605
  Transmission Date: 20141212
  Serious: Yes (Other)
  Sender: FDA-Public Use
  Company Number: SYM-2014-21443

PATIENT
  Age: 26 Year
  Sex: Male

DRUGS (3)
  1. FLUOROURACIL [Suspect]
     Indication: KERATINISING SQUAMOUS CELL CARCINOMA OF NASOPHARYNX
  2. CISPLATIN [Suspect]
     Indication: KERATINISING SQUAMOUS CELL CARCINOMA OF NASOPHARYNX
  3. VINCRISTINE SULFATE [Suspect]
     Indication: KERATINISING SQUAMOUS CELL CARCINOMA OF NASOPHARYNX

REACTIONS (19)
  - Off label use [None]
  - Osteonecrosis [None]
  - Microgenia [None]
  - Glossodynia [None]
  - Pathological fracture [None]
  - Dry mouth [None]
  - Dental caries [None]
  - Salivary gland atrophy [None]
  - Muscle fibrosis [None]
  - Soft tissue disorder [None]
  - Dry mouth [None]
  - Swelling face [None]
  - Trismus [None]
  - Temporomandibular joint syndrome [None]
  - Edentulous [None]
  - Osteoradionecrosis [None]
  - Fistula [None]
  - Malocclusion [None]
  - Tooth hypoplasia [None]
